FAERS Safety Report 12924873 (Version 4)
Quarter: 2016Q4

REPORT INFORMATION
  Report Type: Spontaneous
  Country: US (occurrence: US)
  Receive Date: 20161108
  Receipt Date: 20161221
  Transmission Date: 20170207
  Serious: Yes (Hospitalization)
  Sender: FDA-Public Use
  Company Number: US-ACTELION-A-NJ2016-145120

PATIENT
  Age: 67 Year
  Sex: Female

DRUGS (3)
  1. VELETRI [Suspect]
     Active Substance: EPOPROSTENOL
     Indication: PULMONARY HYPERTENSION
     Dosage: 60 UNK, UNK
     Route: 042
     Dates: start: 20130621
  2. OPSUMIT [Concomitant]
     Active Substance: MACITENTAN
     Indication: PULMONARY HYPERTENSION
  3. COUMADIN [Concomitant]
     Active Substance: WARFARIN SODIUM

REACTIONS (8)
  - Gastric haemorrhage [Unknown]
  - Skin lesion [Unknown]
  - Gastric perforation [Unknown]
  - Multiple allergies [Unknown]
  - International normalised ratio increased [Unknown]
  - Catheter site erythema [Unknown]
  - Catheter site inflammation [Unknown]
  - Unevaluable event [Unknown]
